FAERS Safety Report 8156528-4 (Version None)
Quarter: 2012Q1

REPORT INFORMATION
  Report Type: 
  Country: None (occurrence: None)
  Receive Date: 20120221
  Receipt Date: 20120221
  Transmission Date: 20120608
  Serious: Yes (Hospitalization)
  Sender: FDA-Public Use
  Company Number: None

PATIENT
  Age: 65 Year
  Sex: Male

DRUGS (1)
  1. CLOPIDOGREL [Suspect]
     Dates: start: 20100101, end: 20110624

REACTIONS (2)
  - GASTRIC HAEMORRHAGE [None]
  - DUODENAL ULCER HAEMORRHAGE [None]
